FAERS Safety Report 6863812-0 (Version None)
Quarter: 2010Q3

REPORT INFORMATION
  Report Type: 
  Country: None (occurrence: None)
  Receive Date: 20100720
  Receipt Date: 20100708
  Transmission Date: 20110219
  Serious: Yes (Hospitalization)
  Sender: FDA-Public Use
  Company Number: 7010491

PATIENT
  Age: 45 Year
  Sex: Male

DRUGS (3)
  1. REBIF [Suspect]
     Indication: MULTIPLE SCLEROSIS
     Dosage: 44 MCG, 3 IN 1 WK, SUBCUTANEOUS
     Route: 058
     Dates: start: 20100602
  2. ZONISAMIDE [Concomitant]
     Indication: DEPRESSION
     Dosage: 100 MG
  3. GABAPENTIN [Concomitant]

REACTIONS (4)
  - CONFUSIONAL STATE [None]
  - MALAISE [None]
  - MENTAL IMPAIRMENT [None]
  - UNEVALUABLE EVENT [None]
